FAERS Safety Report 8213462-9 (Version None)
Quarter: 2012Q1

REPORT INFORMATION
  Report Type: 
  Country: None (occurrence: None)
  Receive Date: 20120315
  Receipt Date: 20120308
  Transmission Date: 20120608
  Serious: Yes (Death, Hospitalization, Other)
  Sender: FDA-Public Use
  Company Number: PHEH2012US000748

PATIENT
  Sex: Male

DRUGS (8)
  1. ZOFRAN [Concomitant]
     Dosage: UNK UKN, UNK
  2. SIMVASTATIN [Concomitant]
     Dosage: 80 MG, DAILY
  3. CLONIDINE HCL [Concomitant]
     Dosage: 0.2 MG, DAILY
  4. METOPROLOL TARTRATE [Concomitant]
     Dosage: 25 MG, DAILY
  5. PREVACID [Concomitant]
     Dosage: UNK UKN, UNK
  6. LYRICA [Concomitant]
     Dosage: 50 MG, BID
  7. GILENYA [Suspect]
     Dosage: UNK UKN, UNK
     Route: 048
     Dates: start: 20110217
  8. AMLODIPINE BESYLATE AND BENAZEPRIL HCL [Concomitant]
     Dosage: UNK UKN, UNK

REACTIONS (15)
  - DEATH [None]
  - HAEMORRHAGIC STROKE [None]
  - DISTURBANCE IN ATTENTION [None]
  - NAUSEA [None]
  - CHRONIC RESPIRATORY FAILURE [None]
  - TRACHEAL HAEMORRHAGE [None]
  - BLOOD PRESSURE INCREASED [None]
  - DYSARTHRIA [None]
  - CEREBRAL HAEMORRHAGE [None]
  - VISION BLURRED [None]
  - VIITH NERVE PARALYSIS [None]
  - VISUAL IMPAIRMENT [None]
  - GASTROINTESTINAL HAEMORRHAGE [None]
  - DEPRESSION [None]
  - VOMITING [None]
